FAERS Safety Report 12413389 (Version 2)
Quarter: 2020Q3

REPORT INFORMATION
  Report Type: Spontaneous
  Country: DK (occurrence: DK)
  Receive Date: 20160527
  Receipt Date: 20200715
  Transmission Date: 20201102
  Serious: Yes (Other)
  Sender: FDA-Public Use
  Company Number: DK-MYLANLABS-2016M1020847

PATIENT
  Age: 25 Year
  Sex: Male

DRUGS (4)
  1. MORPHINE [Suspect]
     Active Substance: MORPHINE
     Indication: NECK PAIN
     Dosage: UNK (20?40 MG WITH AN ADDITIONAL DOSE OF 100 MG X 4 AS NECESSARY)
     Route: 065
  2. FENTANYL. [Suspect]
     Active Substance: FENTANYL
     Indication: NECK PAIN
     Dosage: 25 MICROGRAM, QH
     Route: 065
  3. TRAMADOL. [Suspect]
     Active Substance: TRAMADOL
     Indication: NECK PAIN
     Dosage: UNK (150?400 MG DAILY)
     Route: 065
  4. CHLORZOXAZONE. [Concomitant]
     Active Substance: CHLORZOXAZONE
     Indication: NECK PAIN
     Dosage: 250 MG, TID (250 MG, 3 TIMES A DAY)
     Route: 065

REACTIONS (8)
  - Secondary adrenocortical insufficiency [Recovered/Resolved]
  - Weight decreased [Recovering/Resolving]
  - Muscle spasms [Recovering/Resolving]
  - Nausea [Recovering/Resolving]
  - Dizziness [Recovering/Resolving]
  - Sensory disturbance [Recovering/Resolving]
  - Gait disturbance [Recovering/Resolving]
  - Spinal column injury [Recovering/Resolving]
